FAERS Safety Report 6368296-7 (Version None)
Quarter: 2009Q3

REPORT INFORMATION
  Report Type: 
  Country: None (occurrence: None)
  Receive Date: 20090908
  Receipt Date: 20090812
  Transmission Date: 20100115
  Serious: Yes (Life-Threatening)
  Sender: FDA-Public Use
  Company Number: None

PATIENT
  Age: 60 Year
  Sex: Female
  Weight: 68.0396 kg

DRUGS (1)
  1. GUM NUMB / 20% BENZOCAINE/CROSSTEX [Suspect]
     Indication: LOCAL ANAESTHESIA
     Dosage: THIN LAYER APPLY TO GUMS
     Dates: start: 20090812

REACTIONS (1)
  - THROAT TIGHTNESS [None]
